FAERS Safety Report 7361822-0 (Version None)
Quarter: 2011Q1

REPORT INFORMATION
  Report Type: 
  Country: None (occurrence: None)
  Receive Date: 20110318
  Receipt Date: 20110308
  Transmission Date: 20110831
  Serious: Yes (Hospitalization, Other)
  Sender: FDA-Public Use
  Company Number: US-JNJFOC-20090302243

PATIENT
  Sex: Male
  Weight: 28 kg

DRUGS (10)
  1. REMICADE [Suspect]
     Indication: DRUG DEPENDENCE
     Route: 042
  2. URSODIOL [Concomitant]
  3. REMICADE [Suspect]
     Route: 042
  4. REMICADE [Suspect]
     Route: 042
  5. REMICADE [Suspect]
     Route: 042
  6. VITAMIN K TAB [Concomitant]
  7. IRON [Concomitant]
  8. REMICADE [Suspect]
     Indication: COLITIS
     Route: 042
  9. REMICADE [Suspect]
     Indication: COLITIS ULCERATIVE
     Route: 042
  10. PREVACID [Concomitant]

REACTIONS (1)
  - POST PROCEDURAL HAEMORRHAGE [None]
